FAERS Safety Report 24466460 (Version 2)
Quarter: 2024Q4

REPORT INFORMATION
  Report Type: Spontaneous
  Country: JP (occurrence: JP)
  Receive Date: 20241018
  Receipt Date: 20241126
  Transmission Date: 20250114
  Serious: Yes (Other)
  Sender: BRISTOL-MYERS SQUIBB COMPANY
  Company Number: JP-TAIHO-2024-009715

PATIENT
  Age: 8 Decade
  Sex: Male

DRUGS (3)
  1. ABRAXANE [Suspect]
     Active Substance: PACLITAXEL
     Indication: Lung neoplasm malignant
     Dosage: 100 MG/DAY, DETAILS NOT REPORTED, CYCLE 3?DAILY DOSE: 100 MILLIGRAM(S)
     Route: 041
     Dates: start: 20220620
  2. CARBOPLATIN [Concomitant]
     Active Substance: CARBOPLATIN
     Indication: Lung neoplasm malignant
     Dosage: NI, CYCLE 3
     Dates: start: 20220620
  3. TECENTRIQ [Concomitant]
     Active Substance: ATEZOLIZUMAB
     Indication: Lung neoplasm malignant
     Dosage: NI, CYCLE 3
     Dates: start: 20220620

REACTIONS (2)
  - Macular oedema [Unknown]
  - Diabetic retinopathy [Unknown]
